FAERS Safety Report 16345149 (Version 1)
Quarter: 2019Q2

REPORT INFORMATION
  Report Type: Spontaneous
  Country: IT (occurrence: IT)
  Receive Date: 20190523
  Receipt Date: 20190523
  Transmission Date: 20190711
  Serious: Yes (Hospitalization, Other)
  Sender: FDA-Public Use
  Company Number: IT-ROCHE-2322479

PATIENT
  Age: 50 Year
  Sex: Male
  Weight: 70 kg

DRUGS (4)
  1. RIVOTRIL [Suspect]
     Active Substance: CLONAZEPAM
     Indication: PRODUCT USED FOR UNKNOWN INDICATION
     Dosage: 2.5 MG/ML
     Route: 048
     Dates: start: 201608
  2. RIVOTRIL [Suspect]
     Active Substance: CLONAZEPAM
     Dosage: 2.5 MG/ML
     Route: 048
     Dates: start: 20170613, end: 20170613
  3. BRINTELLIX [Suspect]
     Active Substance: VORTIOXETINE HYDROBROMIDE
     Indication: MAJOR DEPRESSION
     Route: 048
     Dates: start: 201608, end: 201706
  4. BRINTELLIX [Suspect]
     Active Substance: VORTIOXETINE HYDROBROMIDE
     Dosage: OVERDOSE
     Route: 048
     Dates: start: 20170613, end: 20170613

REACTIONS (5)
  - Hyperkalaemia [Recovering/Resolving]
  - Suicide attempt [Unknown]
  - Gamma-glutamyltransferase increased [Recovering/Resolving]
  - Intentional overdose [Unknown]
  - Drug ineffective [Unknown]

NARRATIVE: CASE EVENT DATE: 20170613
